FAERS Safety Report 7137635-1 (Version None)
Quarter: 2010Q4

REPORT INFORMATION
  Report Type: 
  Country: None (occurrence: None)
  Receive Date: 20101103
  Receipt Date: 20100706
  Transmission Date: 20110411
  Serious: Yes (Other)
  Sender: FDA-Public Use
  Company Number: 2010S1000709

PATIENT
  Age: 69 Year
  Sex: Male

DRUGS (8)
  1. CUBICIN [Suspect]
     Indication: SOFT TISSUE INFECTION
     Dosage: 700 MG;IV
     Route: 042
     Dates: start: 20091203, end: 20091207
  2. NOREPINEPHRINE BITARTRATE [Concomitant]
  3. PANTOPRAZOLE [Concomitant]
  4. CLEXANE [Concomitant]
  5. DIPRIVAN [Concomitant]
  6. FENGTANEST [Concomitant]
  7. MEROPENEM [Concomitant]
  8. ZYVOX [Concomitant]

REACTIONS (1)
  - RHABDOMYOLYSIS [None]
